FAERS Safety Report 9478531 (Version 1)
Quarter: 2013Q3

REPORT INFORMATION
  Report Type: Spontaneous
  Country: US (occurrence: US)
  Receive Date: 20130827
  Receipt Date: 20130827
  Transmission Date: 20140515
  Serious: No
  Sender: FDA-Public Use
  Company Number: US-009507513-1308USA011652

PATIENT
  Sex: Female

DRUGS (2)
  1. NUVARING [Suspect]
     Indication: CONTRACEPTION
     Dosage: UNK
     Route: 067
     Dates: start: 200504, end: 2007
  2. NUVARING [Suspect]
     Dosage: UNK
     Route: 067
     Dates: start: 20080320, end: 20090726

REACTIONS (1)
  - Maternal exposure before pregnancy [Unknown]
